FAERS Safety Report 14508275 (Version 1)
Quarter: 2018Q1

REPORT INFORMATION
  Report Type: Spontaneous
  Country: US (occurrence: US)
  Receive Date: 20180209
  Receipt Date: 20180209
  Transmission Date: 20180509
  Serious: Yes (Death)
  Sender: FDA-Public Use
  Company Number: US-BEH-2018087473

PATIENT
  Sex: Male
  Weight: 99.77 kg

DRUGS (29)
  1. HIZENTRA [Suspect]
     Active Substance: HUMAN IMMUNOGLOBULIN G
     Dosage: UNK
     Route: 058
  2. ELIQUIS [Concomitant]
     Active Substance: APIXABAN
  3. ALBUTEROL                          /00139501/ [Concomitant]
     Active Substance: ALBUTEROL
  4. SPIRIVA [Concomitant]
     Active Substance: TIOTROPIUM BROMIDE MONOHYDRATE
  5. DOXYCYCLINE. [Concomitant]
     Active Substance: DOXYCYCLINE
  6. VENTOLIN [Concomitant]
     Active Substance: ALBUTEROL SULFATE
  7. ADVAIR HFA [Concomitant]
     Active Substance: FLUTICASONE PROPIONATE\SALMETEROL XINAFOATE
  8. OMEPRAZOLE. [Concomitant]
     Active Substance: OMEPRAZOLE
  9. BACTRIM [Concomitant]
     Active Substance: SULFAMETHOXAZOLE\TRIMETHOPRIM
  10. HIZENTRA [Suspect]
     Active Substance: HUMAN IMMUNOGLOBULIN G
     Indication: IMMUNODEFICIENCY COMMON VARIABLE
     Dosage: 19 G, QW
     Route: 058
     Dates: start: 20170621
  11. PREDNISONE. [Concomitant]
     Active Substance: PREDNISONE
  12. AMLODIPINE [Concomitant]
     Active Substance: AMLODIPINE BESYLATE
  13. FLUTICASONE. [Concomitant]
     Active Substance: FLUTICASONE
  14. VIAGRA [Concomitant]
     Active Substance: SILDENAFIL CITRATE
  15. HIZENTRA [Suspect]
     Active Substance: HUMAN IMMUNOGLOBULIN G
     Dosage: UNK
     Route: 058
  16. OXYGEN. [Concomitant]
     Active Substance: OXYGEN
  17. FUROSEMIDE. [Concomitant]
     Active Substance: FUROSEMIDE
  18. TAMSULOSIN [Concomitant]
     Active Substance: TAMSULOSIN
  19. DIGOXIN. [Concomitant]
     Active Substance: DIGOXIN
  20. GABAPENTIN. [Concomitant]
     Active Substance: GABAPENTIN
  21. LORATADINE. [Concomitant]
     Active Substance: LORATADINE
  22. CEPHALEXIN                         /00145501/ [Concomitant]
     Active Substance: CEPHALEXIN
  23. LISINOPRIL. [Concomitant]
     Active Substance: LISINOPRIL
  24. DIFLUCAN [Concomitant]
     Active Substance: FLUCONAZOLE
  25. IPRATROPIUM BROMIDE AND ALBUTEROL SULFATE [Concomitant]
     Active Substance: ALBUTEROL SULFATE\IPRATROPIUM BROMIDE
  26. METOPROLOL. [Concomitant]
     Active Substance: METOPROLOL
  27. AZITHROMYCIN ANHYDROUS. [Concomitant]
     Active Substance: AZITHROMYCIN ANHYDROUS
  28. ZITHROMAX [Concomitant]
     Active Substance: AZITHROMYCIN DIHYDRATE
  29. MULTIVITAMIN                       /00097801/ [Concomitant]
     Active Substance: VITAMINS

REACTIONS (1)
  - Death [Fatal]
